FAERS Safety Report 24611399 (Version 1)
Quarter: 2024Q4

REPORT INFORMATION
  Report Type: Spontaneous
  Country: US (occurrence: US)
  Receive Date: 20241113
  Receipt Date: 20241113
  Transmission Date: 20250115
  Serious: No
  Sender: AMGEN
  Company Number: US-AMGEN-USASP2024220933

PATIENT
  Sex: Female

DRUGS (2)
  1. REPATHA [Suspect]
     Active Substance: EVOLOCUMAB
     Indication: Blood cholesterol abnormal
     Dosage: UNK
     Route: 065
     Dates: end: 20240929
  2. POISON IVY [Concomitant]
     Active Substance: TOXICODENDRON RADICANS LEAF

REACTIONS (7)
  - Rash pruritic [Recovering/Resolving]
  - Blood triglycerides increased [Recovering/Resolving]
  - Memory impairment [Recovering/Resolving]
  - Abdominal pain upper [Recovering/Resolving]
  - Irritable bowel syndrome [Recovering/Resolving]
  - Fibromyalgia [Recovering/Resolving]
  - Blood glucose increased [Recovering/Resolving]
